FAERS Safety Report 6870039-5 (Version None)
Quarter: 2010Q3

REPORT INFORMATION
  Report Type: 
  Country: None (occurrence: None)
  Receive Date: 20100722
  Receipt Date: 20100712
  Transmission Date: 20110219
  Serious: Yes (Other)
  Sender: FDA-Public Use
  Company Number: JP-PFIZER INC-2010090971

PATIENT
  Age: 69 Year
  Sex: Male

DRUGS (3)
  1. CELECOX [Suspect]
     Dosage: 200 MG, DAILY
     Route: 048
  2. ACETYLSALICYLIC ACID [Concomitant]
     Dosage: UNK
     Route: 048
  3. AMLODIN [Concomitant]
     Dosage: UNK

REACTIONS (1)
  - ATRIOVENTRICULAR BLOCK SECOND DEGREE [None]
